FAERS Safety Report 20816161 (Version 1)
Quarter: 2022Q2

REPORT INFORMATION
  Report Type: Spontaneous
  Country: IT (occurrence: IT)
  Receive Date: 20220511
  Receipt Date: 20220511
  Transmission Date: 20220721
  Serious: Yes (Other)
  Sender: FDA-Public Use
  Company Number: IT-ELI_LILLY_AND_COMPANY-IT202204010496

PATIENT
  Age: 61 Year
  Sex: Male

DRUGS (5)
  1. PEMBROLIZUMAB [Suspect]
     Active Substance: PEMBROLIZUMAB
     Indication: Lung adenocarcinoma
     Dosage: UNK UNK, OTHER (Q21)
     Route: 065
     Dates: start: 20201221, end: 202108
  2. PEMETREXED [Suspect]
     Active Substance: PEMETREXED
     Indication: Lung adenocarcinoma
     Dosage: UNK UNK, UNKNOWN (2ND DOSE REDUCTION), DOSAGE FORM: VIAL
     Route: 065
     Dates: start: 2021, end: 202108
  3. PEMETREXED [Suspect]
     Active Substance: PEMETREXED
     Dosage: UNK UNK, UNKNOWN (1ST DOSE REDUCTION), DOSAGE FORM: VIAL
     Route: 065
     Dates: start: 2021
  4. PEMETREXED [Suspect]
     Active Substance: PEMETREXED
     Dosage: UNK UNK, UNKNOWN, DOSAGE FORM: VIAL
     Route: 065
     Dates: start: 20201221
  5. CARBOPLATIN [Suspect]
     Active Substance: CARBOPLATIN
     Indication: Lung adenocarcinoma
     Dosage: UNK UNK, UNKNOWN
     Route: 065
     Dates: start: 20201221, end: 202103

REACTIONS (4)
  - Malignant neoplasm progression [Unknown]
  - Superficial vein thrombosis [Unknown]
  - Therapy partial responder [Unknown]
  - Neutropenia [Unknown]

NARRATIVE: CASE EVENT DATE: 20210101
